FAERS Safety Report 6445894-3 (Version None)
Quarter: 2009Q4

REPORT INFORMATION
  Report Type: 
  Country: None (occurrence: None)
  Receive Date: 20091119
  Receipt Date: 20081009
  Transmission Date: 20100525
  Serious: Yes (Other)
  Sender: FDA-Public Use
  Company Number: A0751336A

PATIENT
  Age: 86 Year
  Sex: Male

DRUGS (11)
  1. WELLBUTRIN SR [Suspect]
     Indication: DEPRESSION
     Dosage: 150MG TWICE PER DAY
     Route: 048
     Dates: start: 20070101
  2. BUPROPION HYDROCHLORIDE [Suspect]
     Indication: DEPRESSION
     Route: 048
     Dates: start: 20070101
  3. FUROSEMIDE [Concomitant]
  4. KLOR-CON [Concomitant]
  5. CARBIDOPA-LEVODOPA [Concomitant]
  6. ALLOPURINOL [Concomitant]
  7. CARVEDILOL [Concomitant]
  8. PRAVASTATIN [Concomitant]
  9. OMEPRAZOLE [Concomitant]
  10. DETROL [Concomitant]
  11. SPIRONOLACTONE [Concomitant]

REACTIONS (3)
  - CRYING [None]
  - PAIN [None]
  - SUICIDAL IDEATION [None]
